FAERS Safety Report 12418097 (Version 6)
Quarter: 2025Q3

REPORT INFORMATION
  Report Type: Spontaneous
  Country: US (occurrence: US)
  Receive Date: 20160531
  Receipt Date: 20250722
  Transmission Date: 20251021
  Serious: Yes (Other)
  Sender: BIOGEN
  Company Number: US-BIOGEN-2016BI00236390

PATIENT
  Age: 56 Year
  Sex: Female

DRUGS (3)
  1. TYSABRI [Suspect]
     Active Substance: NATALIZUMAB
     Indication: Multiple sclerosis
     Route: 050
     Dates: start: 20150202
  2. B12 [Concomitant]
     Indication: Product used for unknown indication
     Route: 050
  3. Mag Salt [Concomitant]
     Indication: Product used for unknown indication
     Route: 050

REACTIONS (11)
  - Cerebrovascular insufficiency [Unknown]
  - Confusional state [Unknown]
  - Memory impairment [Unknown]
  - Stress [Unknown]
  - Nerve compression [Unknown]
  - Hypoglycaemia [Unknown]
  - Hyperhidrosis [Unknown]
  - Pain [Unknown]
  - Dizziness [Not Recovered/Not Resolved]
  - Fatigue [Unknown]
  - Abdominal discomfort [Unknown]

NARRATIVE: CASE EVENT DATE: 20160504
